FAERS Safety Report 7092039-5 (Version None)
Quarter: 2010Q4

REPORT INFORMATION
  Report Type: 
  Country: None (occurrence: None)
  Receive Date: 20101109
  Receipt Date: 20080730
  Transmission Date: 20110411
  Serious: No
  Sender: FDA-Public Use
  Company Number: US-KINGPHARMUSA00001-K200800904

PATIENT
  Sex: Female
  Weight: 46.259 kg

DRUGS (6)
  1. TAPAZOLE [Suspect]
     Indication: HYPERTHYROIDISM
     Dosage: 10 MG, BID
     Route: 048
     Dates: start: 20080617
  2. ASACOL [Concomitant]
     Indication: CROHN'S DISEASE
     Dosage: 800 MG, TID
     Route: 048
  3. FOLIC ACID [Concomitant]
     Dosage: 1 MG, QD
     Route: 048
  4. PROPRANOLOL [Concomitant]
     Dosage: 20 MG, TID
     Route: 048
  5. PROTONIX [Concomitant]
     Dosage: 40 MG, QD
     Route: 048
  6. LOMOTIL                            /00034001/ [Concomitant]
     Dosage: .025 MG, PRN
     Route: 048

REACTIONS (1)
  - DRUG INEFFECTIVE [None]
